FAERS Safety Report 8912863 (Version 4)
Quarter: 2013Q4

REPORT INFORMATION
  Report Type: Report from Study
  Country: US (occurrence: US)
  Receive Date: 20121115
  Receipt Date: 20131226
  Transmission Date: 20140711
  Serious: Yes (Hospitalization)
  Sender: FDA-Public Use
  Company Number: US-ASTRAZENECA-2012SE85320

PATIENT
  Age: 17577 Day
  Sex: Male

DRUGS (7)
  1. VANDETANIB [Suspect]
     Indication: MEDULLARY THYROID CANCER
     Route: 048
     Dates: start: 20120918, end: 20121007
  2. VANDETANIB [Suspect]
     Indication: MEDULLARY THYROID CANCER
     Route: 048
     Dates: start: 20121009, end: 20121106
  3. KCL [Concomitant]
     Indication: HYPOKALAEMIA
     Route: 048
     Dates: start: 20120919
  4. SYNTHROID [Concomitant]
     Indication: POST PROCEDURAL HYPOTHYROIDISM
     Route: 048
  5. LORATADINE [Concomitant]
     Indication: HYPERSENSITIVITY
     Route: 048
     Dates: start: 20120320
  6. LORATADINE [Concomitant]
     Indication: SINUSITIS
     Route: 048
     Dates: start: 20120320
  7. TEMAZEPAM [Concomitant]
     Indication: INSOMNIA
     Route: 048

REACTIONS (2)
  - Skin ulcer [Recovering/Resolving]
  - Post procedural haematoma [Recovering/Resolving]
